FAERS Safety Report 26124288 (Version 3)
Quarter: 2025Q4

REPORT INFORMATION
  Report Type: Spontaneous
  Country: EU (occurrence: EU)
  Receive Date: 20251205
  Receipt Date: 20251216
  Transmission Date: 20260117
  Serious: Yes (Other)
  Sender: SANDOZ
  Company Number: EU-AMGEN-GRCSP2025230607

PATIENT
  Age: 42 Year
  Sex: Male

DRUGS (3)
  1. ADALIMUMAB [Suspect]
     Active Substance: ADALIMUMAB
     Indication: Colitis ulcerative
     Dosage: 40 MG, Q2W
     Route: 058
  2. ADALIMUMAB [Suspect]
     Active Substance: ADALIMUMAB
     Indication: Proctitis ulcerative
  3. AMINOSALICYLATE SODIUM [Concomitant]
     Active Substance: AMINOSALICYLATE SODIUM
     Indication: Proctitis ulcerative
     Route: 065

REACTIONS (13)
  - Colitis ulcerative [Recovered/Resolved]
  - Rectal haemorrhage [Unknown]
  - Extranodal marginal zone B-cell lymphoma (MALT type) [Unknown]
  - B-cell lymphoma [Unknown]
  - Non-Hodgkin^s lymphoma [Unknown]
  - Dermatitis psoriasiform [Unknown]
  - Proctalgia [Unknown]
  - Lymphadenopathy [Unknown]
  - Anal ulcer [Recovering/Resolving]
  - Magnetic resonance imaging abnormal [Unknown]
  - Rectal lesion [Unknown]
  - Dyschezia [Unknown]
  - Colitis ulcerative [Unknown]
